FAERS Safety Report 10042228 (Version 1)
Quarter: 2014Q1

REPORT INFORMATION
  Report Type: Spontaneous
  Country: US (occurrence: US)
  Receive Date: 20140327
  Receipt Date: 20140327
  Transmission Date: 20141002
  Serious: No
  Sender: FDA-Public Use
  Company Number: US-BAYER-2014-046475

PATIENT
  Age: 49 Year
  Sex: Male

DRUGS (1)
  1. GADAVIST [Suspect]
     Dosage: 8 ML, ONCE
     Route: 017
     Dates: start: 20140326, end: 20140326

REACTIONS (2)
  - Rash macular [Recovered/Resolved]
  - Urticaria [Recovered/Resolved]
